FAERS Safety Report 15680986 (Version 2)
Quarter: 2019Q1

REPORT INFORMATION
  Report Type: Report from Study
  Country: CA (occurrence: CA)
  Receive Date: 20181203
  Receipt Date: 20190123
  Transmission Date: 20190417
  Serious: Yes (Other)
  Sender: FDA-Public Use
  Company Number: CA-GLAXOSMITHKLINE-CA2018GSK217233

PATIENT
  Age: 71 Year
  Sex: Female

DRUGS (1)
  1. SALBUTAMOL SULPHATE [Suspect]
     Active Substance: ALBUTEROL SULFATE
     Indication: ASTHMA
     Dosage: 2 PUFF(S), Z (ONCE MONTHLY)
     Route: 055

REACTIONS (6)
  - Dyspnoea [Unknown]
  - Muscle strain [Unknown]
  - Drug effect incomplete [Unknown]
  - Back pain [Unknown]
  - Airway remodelling [Unknown]
  - Asthma [Unknown]

NARRATIVE: CASE EVENT DATE: 20181113
